FAERS Safety Report 5310804-9 (Version None)
Quarter: 2007Q2

REPORT INFORMATION
  Report Type: 
  Country: None (occurrence: None)
  Receive Date: 20070428
  Receipt Date: 20070419
  Transmission Date: 20071010
  Serious: Yes (Disabling, Other)
  Sender: FDA-Public Use
  Company Number: AU-PFIZER INC-2007013633

PATIENT
  Sex: Female

DRUGS (1)
  1. SILDENAFIL (PAH) [Suspect]
     Indication: RIGHT VENTRICULAR FAILURE
     Route: 048

REACTIONS (1)
  - RESPIRATORY FAILURE [None]
